FAERS Safety Report 5387952-0 (Version None)
Quarter: 2007Q3

REPORT INFORMATION
  Report Type: 
  Country: None (occurrence: None)
  Receive Date: 20070716
  Receipt Date: 20060926
  Transmission Date: 20080115
  Serious: No
  Sender: FDA-Public Use
  Company Number: A0621229A

PATIENT
  Sex: Female

DRUGS (2)
  1. NICORETTE (MINT) [Suspect]
  2. NICORETTE (MINT) [Suspect]

REACTIONS (2)
  - DYSGEUSIA [None]
  - EXPIRED DRUG ADMINISTERED [None]
